FAERS Safety Report 12398135 (Version 2)
Quarter: 2016Q3

REPORT INFORMATION
  Report Type: Spontaneous
  Country: PT (occurrence: PT)
  Receive Date: 20160524
  Receipt Date: 20160706
  Transmission Date: 20161109
  Serious: Yes (Other)
  Sender: FDA-Public Use
  Company Number: PHHY2016PT067651

PATIENT
  Age: 61 Year
  Sex: Female
  Weight: 80 kg

DRUGS (2)
  1. VOLTAREN [Suspect]
     Active Substance: DICLOFENAC SODIUM
     Indication: INTERVERTEBRAL DISC PROTRUSION
     Dosage: 1 AMPOULE/ DAY
     Route: 030
     Dates: start: 20160321, end: 20160327
  2. RELMUS [Concomitant]
     Active Substance: THIOCOLCHICOSIDE
     Indication: INTERVERTEBRAL DISC PROTRUSION
     Dosage: 1 DF, QD
     Route: 030
     Dates: start: 20160321, end: 20160327

REACTIONS (7)
  - Injection site ulcer [Recovering/Resolving]
  - Injection site pain [Recovering/Resolving]
  - Gait disturbance [Recovering/Resolving]
  - Wound [Recovering/Resolving]
  - Injection site necrosis [Recovering/Resolving]
  - Injection site swelling [Recovering/Resolving]
  - Injection site haematoma [Recovering/Resolving]

NARRATIVE: CASE EVENT DATE: 20160324
